FAERS Safety Report 26201452 (Version 1)
Quarter: 2025Q4

REPORT INFORMATION
  Report Type: Spontaneous
  Country: US (occurrence: US)
  Receive Date: 20251226
  Receipt Date: 20251226
  Transmission Date: 20260118
  Serious: Yes (Hospitalization, Other)
  Sender: CELLTRION
  Company Number: US-CELLTRION INC.-2025US034833

PATIENT

DRUGS (7)
  1. RITUXIMAB [Suspect]
     Active Substance: RITUXIMAB
     Indication: Systemic lupus erythematosus
     Dosage: 750 MG/M2 (WITH A MAXIMUM OF 1G PER DOSE) WITH TWO DOSES ADMINISTERED TWO WEEKS APART EVERY SIX MONT
     Route: 042
  2. CYCLOPHOSPHAMIDE [Suspect]
     Active Substance: CYCLOPHOSPHAMIDE
     Indication: Systemic lupus erythematosus
     Dosage: 500 TO 700 MG/M2 ONCE A MONTH FOR SIX MONTHS
     Route: 042
  3. MESNA [Concomitant]
     Active Substance: MESNA
     Indication: Premedication
  4. DIPHENHYDRAMINE [Concomitant]
     Active Substance: DIPHENHYDRAMINE
     Indication: Premedication
     Dosage: STANDARD DOSES
  5. ACETAMINOPHEN [Concomitant]
     Active Substance: ACETAMINOPHEN
     Indication: Premedication
     Dosage: STANDARD DOSES
  6. METHYLPREDNISOLONE [Concomitant]
     Active Substance: METHYLPREDNISOLONE
     Indication: Premedication
     Dosage: MAXIMUM OF 1G PER DOSE ADMINISTERED
  7. PREDNISONE [Concomitant]
     Active Substance: PREDNISONE
     Dosage: 60 MG

REACTIONS (3)
  - Chlamydial pelvic inflammatory disease [Unknown]
  - Herpes simplex [Unknown]
  - Intentional product use issue [Unknown]
